FAERS Safety Report 4657248-0 (Version None)
Quarter: 2005Q2

REPORT INFORMATION
  Report Type: 
  Country: None (occurrence: None)
  Receive Date: 20050506
  Receipt Date: 20050502
  Transmission Date: 20051028
  Serious: No
  Sender: FDA-Public Use
  Company Number: ZONI002142

PATIENT
  Age: 45 Year
  Sex: Female

DRUGS (2)
  1. ZONEGRAN [Suspect]
     Indication: MIGRAINE
     Dosage: 300 MG, 3 IN 1 D, ORAL
     Route: 048
     Dates: start: 20040101, end: 20050101
  2. INHALED STEROIDS [Concomitant]

REACTIONS (3)
  - CATARACT [None]
  - CONDITION AGGRAVATED [None]
  - VISION BLURRED [None]
